FAERS Safety Report 9475252 (Version 1)
Quarter: 2013Q3

REPORT INFORMATION
  Report Type: Spontaneous
  Country: DE (occurrence: DE)
  Receive Date: 20130825
  Receipt Date: 20130825
  Transmission Date: 20140515
  Serious: Yes (Other)
  Sender: FDA-Public Use
  Company Number: DE-PFIZER INC-2013243272

PATIENT
  Age: 63 Year
  Sex: Male

DRUGS (3)
  1. GABAPENTIN [Suspect]
     Indication: POLYNEUROPATHY
     Dosage: 900 MG, 4X/DAY
     Route: 048
  2. HCT [Concomitant]
     Indication: HYPERTENSION
     Dosage: 25 MG, 1X/DAY
     Route: 048
  3. FERRO ^SANOL^ [Concomitant]
     Indication: IRON DEFICIENCY ANAEMIA
     Dosage: 50 MG, 1X/DAY
     Route: 048

REACTIONS (1)
  - Electrocardiogram QT prolonged [Recovered/Resolved]
